FAERS Safety Report 6768866-8 (Version None)
Quarter: 2010Q2

REPORT INFORMATION
  Report Type: 
  Country: None (occurrence: None)
  Receive Date: 20100614
  Receipt Date: 20100607
  Transmission Date: 20101027
  Serious: Yes (Other)
  Sender: FDA-Public Use
  Company Number: GB-NOVEN-10GB001325

PATIENT
  Age: 73 Year
  Sex: Female

DRUGS (3)
  1. LITHIUM CARBONATE CAP [Suspect]
     Indication: BIPOLAR DISORDER
     Dosage: UNK
     Dates: start: 19950501, end: 20050101
  2. LITHIUM CARBONATE CAP [Suspect]
     Dosage: 400 MG, UNK
     Dates: start: 20060101
  3. UNKNOWN [Concomitant]

REACTIONS (3)
  - DEPRESSION [None]
  - RENAL FAILURE CHRONIC [None]
  - TREATMENT NONCOMPLIANCE [None]
